FAERS Safety Report 8660079 (Version 3)
Quarter: 2013Q4

REPORT INFORMATION
  Report Type: Spontaneous
  Country: US (occurrence: US)
  Receive Date: 20120711
  Receipt Date: 20131205
  Transmission Date: 20140711
  Serious: Yes (Hospitalization, Other)
  Sender: FDA-Public Use
  Company Number: US-PFIZER INC-2012165112

PATIENT
  Age: 53 Year
  Sex: Female

DRUGS (2)
  1. CHANTIX [Suspect]
     Dosage: UNK
     Dates: start: 20060101, end: 20080101
  2. CHANTIX [Suspect]
     Dosage: 1 MG, MAINTENANCE PACK
     Dates: start: 20071224

REACTIONS (5)
  - Suicide attempt [Unknown]
  - Loss of consciousness [Unknown]
  - Depression [Unknown]
  - Mood swings [Unknown]
  - Injury [Unknown]
